FAERS Safety Report 23561658 (Version 3)
Quarter: 2025Q3

REPORT INFORMATION
  Report Type: Other
  Country: EU (occurrence: EU)
  Receive Date: 20240225
  Receipt Date: 20250924
  Transmission Date: 20251021
  Serious: Yes (Life-Threatening, Hospitalization, Other)
  Sender: Steriscience PTE
  Company Number: EU-TEVA-VS-3150903

PATIENT
  Age: 42 Year
  Sex: Female

DRUGS (21)
  1. MEROPENEM [Interacting]
     Active Substance: MEROPENEM
     Indication: Bronchopulmonary aspergillosis
     Route: 065
  2. MEROPENEM [Interacting]
     Active Substance: MEROPENEM
     Indication: Condition aggravated
     Route: 065
  3. AVIBACTAM SODIUM\CEFTAZIDIME [Interacting]
     Active Substance: AVIBACTAM SODIUM\CEFTAZIDIME
     Indication: Bronchopulmonary aspergillosis
     Route: 065
  4. AVIBACTAM SODIUM\CEFTAZIDIME [Interacting]
     Active Substance: AVIBACTAM SODIUM\CEFTAZIDIME
     Indication: Sepsis
     Route: 065
  5. LINEZOLID [Interacting]
     Active Substance: LINEZOLID
     Indication: Bronchopulmonary aspergillosis
     Route: 065
  6. LINEZOLID [Interacting]
     Active Substance: LINEZOLID
     Indication: Sepsis
     Route: 065
  7. VORICONAZOLE [Interacting]
     Active Substance: VORICONAZOLE
     Indication: Bronchopulmonary aspergillosis
     Route: 065
  8. VORICONAZOLE [Interacting]
     Active Substance: VORICONAZOLE
     Indication: Antifungal treatment
     Route: 042
  9. VORICONAZOLE [Interacting]
     Active Substance: VORICONAZOLE
     Indication: Aspergillus infection
  10. MEROPENEM [Interacting]
     Active Substance: MEROPENEM
     Indication: Antibiotic therapy
     Route: 065
  11. MOXIFLOXACIN [Interacting]
     Active Substance: MOXIFLOXACIN
     Indication: Antibiotic therapy
     Route: 065
  12. MOXIFLOXACIN [Interacting]
     Active Substance: MOXIFLOXACIN
     Indication: Sepsis
     Route: 065
  13. METRONIDAZOLE [Interacting]
     Active Substance: METRONIDAZOLE
     Indication: Antibiotic therapy
     Route: 065
  14. METRONIDAZOLE [Interacting]
     Active Substance: METRONIDAZOLE
     Indication: Sepsis
     Route: 065
  15. LEVOFLOXACIN [Interacting]
     Active Substance: LEVOFLOXACIN
     Indication: Antibiotic therapy
     Route: 065
  16. LEVOFLOXACIN [Interacting]
     Active Substance: LEVOFLOXACIN
     Indication: Pneumonia
     Route: 065
  17. KETAMINE [Interacting]
     Active Substance: KETAMINE
     Indication: Product used for unknown indication
     Route: 065
  18. NOREPINEPHRINE BITARTRATE [Suspect]
     Active Substance: NOREPINEPHRINE BITARTRATE
     Indication: Cardiovascular disorder
     Route: 065
  19. LEVOFLOXACIN [Concomitant]
     Active Substance: LEVOFLOXACIN
     Indication: Condition aggravated
     Route: 065
  20. ANIDULAFUNGIN [Concomitant]
     Active Substance: ANIDULAFUNGIN
     Indication: Antifungal treatment
     Route: 065
  21. CRESEMBA [Concomitant]
     Active Substance: ISAVUCONAZONIUM SULFATE
     Indication: Antifungal treatment
     Route: 065

REACTIONS (8)
  - Multiple organ dysfunction syndrome [Unknown]
  - Drug interaction [None]
  - Respiratory failure [Unknown]
  - Sepsis [None]
  - Disease progression [None]
  - Liver disorder [Unknown]
  - Drug ineffective [Unknown]
  - Product use in unapproved indication [None]
